FAERS Safety Report 7791398-5 (Version None)
Quarter: 2011Q4

REPORT INFORMATION
  Report Type: 
  Country: None (occurrence: None)
  Receive Date: 20111003
  Receipt Date: 20110921
  Transmission Date: 20120403
  Serious: Yes (Hospitalization)
  Sender: FDA-Public Use
  Company Number: US-JNJFOC-20110909929

PATIENT
  Sex: Male
  Weight: 74.84 kg

DRUGS (4)
  1. REMICADE [Suspect]
     Indication: CROHN'S DISEASE
     Route: 042
     Dates: start: 20100101
  2. REMICADE [Suspect]
     Route: 042
     Dates: end: 20110902
  3. REMICADE [Suspect]
     Route: 042
     Dates: start: 20100101
  4. REMICADE [Suspect]
     Indication: COLITIS ULCERATIVE
     Route: 042
     Dates: end: 20110902

REACTIONS (7)
  - COLITIS ULCERATIVE [None]
  - FLUSHING [None]
  - MYDRIASIS [None]
  - PARAESTHESIA [None]
  - THROAT TIGHTNESS [None]
  - CROHN'S DISEASE [None]
  - INFUSION RELATED REACTION [None]
